FAERS Safety Report 8885056 (Version 2)
Quarter: 2013Q1

REPORT INFORMATION
  Report Type: Spontaneous
  Country: NL (occurrence: NL)
  Receive Date: 20121105
  Receipt Date: 20130117
  Transmission Date: 20140127
  Serious: Yes (Other)
  Sender: FDA-Public Use
  Company Number: NL-BIOGENIDEC-2012BI049038

PATIENT
  Age: 55 Year
  Sex: Female

DRUGS (2)
  1. AVONEX [Suspect]
     Indication: PRODUCT USED FOR UNKNOWN INDICATION
     Route: 030
     Dates: start: 2004
  2. CHEMOTHERAPY (NOS) [Concomitant]

REACTIONS (2)
  - Adenocarcinoma gastric [Not Recovered/Not Resolved]
  - Vomiting [Not Recovered/Not Resolved]
